FAERS Safety Report 7628370-1 (Version None)
Quarter: 2011Q3

REPORT INFORMATION
  Report Type: 
  Country: None (occurrence: None)
  Receive Date: 20110722
  Receipt Date: 20110711
  Transmission Date: 20111222
  Serious: Yes (Hospitalization, Congenital Anomaly)
  Sender: FDA-Public Use
  Company Number: US-UCBSA-8054410

PATIENT
  Sex: Male
  Weight: 3.9 kg

DRUGS (5)
  1. KEPPRA [Suspect]
     Route: 064
     Dates: end: 20090529
  2. MULTI-VITAMIN [Concomitant]
     Indication: PROPHYLAXIS
     Route: 064
     Dates: end: 20090529
  3. ZYRTEC [Concomitant]
     Indication: HYPERSENSITIVITY
     Route: 064
     Dates: end: 20090529
  4. LAMOTRIGINE [Concomitant]
     Route: 064
     Dates: end: 20090529
  5. LAMOTRIGINE [Concomitant]
     Indication: CONVULSION
     Route: 064
     Dates: end: 20090529

REACTIONS (2)
  - EXOMPHALOS [None]
  - MATERNAL EXPOSURE DURING PREGNANCY [None]
